FAERS Safety Report 14869290 (Version 2)
Quarter: 2020Q3

REPORT INFORMATION
  Report Type: Report from Study
  Country: US (occurrence: US)
  Receive Date: 20180509
  Receipt Date: 20180516
  Transmission Date: 20201105
  Serious: Yes (Hospitalization)
  Sender: FDA-Public Use
  Company Number: US-ROCHE-2118371

PATIENT
  Age: 72 Year
  Sex: Male
  Weight: 105.1 kg

DRUGS (3)
  1. LENALIDOMIDE [Suspect]
     Active Substance: LENALIDOMIDE
     Indication: DIFFUSE LARGE B-CELL LYMPHOMA REFRACTORY
     Dosage: ON DAYS 1 TO 21 OF EACH 28?DAY CYCLE FOR UP TO 6 CYCLES?DATE OF MOST RECENT DOSE PRIOR TO SAE: 26/AP
     Route: 048
     Dates: start: 20180418, end: 20180427
  2. POLATUZUMAB VEDOTIN. [Suspect]
     Active Substance: POLATUZUMAB VEDOTIN
     Indication: DIFFUSE LARGE B-CELL LYMPHOMA REFRACTORY
     Dosage: DATE OF MOST RECENT DOSE PRIOR TO SAE: 18/APR/2018
     Route: 042
     Dates: start: 20180418
  3. RITUXIMAB. [Suspect]
     Active Substance: RITUXIMAB
     Indication: DIFFUSE LARGE B-CELL LYMPHOMA REFRACTORY
     Dosage: DATE OF MOST RECENT DOSE PRIOR TO SAE: 18/APR/2018
     Route: 042
     Dates: start: 20180418

REACTIONS (1)
  - Confusional state [Recovered/Resolved]

NARRATIVE: CASE EVENT DATE: 20180427
